FAERS Safety Report 8494715-6 (Version None)
Quarter: 2012Q3

REPORT INFORMATION
  Report Type: 
  Country: None (occurrence: None)
  Receive Date: 20120709
  Receipt Date: 20120629
  Transmission Date: 20120928
  Serious: Yes (Other)
  Sender: FDA-Public Use
  Company Number: CA-JNJFOC-20120700880

PATIENT
  Sex: Female
  Weight: 41.3 kg

DRUGS (7)
  1. ADVAIR DISKUS 100/50 [Concomitant]
     Route: 065
  2. REMICADE [Suspect]
     Route: 042
     Dates: start: 20090101
  3. NEXIUM [Concomitant]
     Route: 065
  4. REMICADE [Suspect]
     Indication: CROHN'S DISEASE
     Route: 042
     Dates: start: 20120629
  5. ALBUTEROL SULATE [Concomitant]
     Route: 065
  6. SPIRIVA [Concomitant]
     Route: 065
  7. LEVOTHYROXINE SODIUM [Concomitant]
     Route: 065

REACTIONS (5)
  - COUGH [None]
  - FALL [None]
  - CHEST DISCOMFORT [None]
  - LIMB INJURY [None]
  - INFUSION RELATED REACTION [None]
